FAERS Safety Report 10490257 (Version 1)
Quarter: 2014Q4

REPORT INFORMATION
  Report Type: Spontaneous
  Country: US (occurrence: US)
  Receive Date: 20141002
  Receipt Date: 20141002
  Transmission Date: 20150528
  Serious: Yes (Death, Other)
  Sender: FDA-Public Use
  Company Number: US-JNJFOC-20141000777

PATIENT
  Age: 61 Year
  Sex: Male

DRUGS (1)
  1. IMBRUVICA [Suspect]
     Active Substance: IBRUTINIB
     Indication: B-CELL LYMPHOMA
     Route: 065
     Dates: start: 201401

REACTIONS (7)
  - Weight decreased [Unknown]
  - Feeling abnormal [Unknown]
  - Spleen disorder [Unknown]
  - Off label use [None]
  - Death [Fatal]
  - Dyspnoea [Unknown]
  - Haemothorax [Unknown]

NARRATIVE: CASE EVENT DATE: 2014
